FAERS Safety Report 8019835-1 (Version None)
Quarter: 2012Q1

REPORT INFORMATION
  Report Type: 
  Country: None (occurrence: None)
  Receive Date: 20120103
  Receipt Date: 20111229
  Transmission Date: 20120608
  Serious: Yes (Life-Threatening, Hospitalization)
  Sender: FDA-Public Use
  Company Number: FR-ELI_LILLY_AND_COMPANY-FR201112007633

PATIENT
  Sex: Male

DRUGS (2)
  1. ASPIRIN [Concomitant]
     Dosage: 75 MG, QD
     Route: 048
     Dates: start: 20111118
  2. EFFIENT [Suspect]
     Dosage: 10 MG, QD
     Route: 048
     Dates: start: 20111110, end: 20111118

REACTIONS (4)
  - SHOCK HAEMORRHAGIC [None]
  - MALAISE [None]
  - GASTROINTESTINAL HAEMORRHAGE [None]
  - PERITONEAL HAEMORRHAGE [None]
